FAERS Safety Report 5580492-5 (Version None)
Quarter: 2007Q4

REPORT INFORMATION
  Report Type: 
  Country: None (occurrence: None)
  Receive Date: 20071231
  Receipt Date: 20071231
  Transmission Date: 20080405
  Serious: Yes (Hospitalization)
  Sender: FDA-Public Use
  Company Number: None

PATIENT
  Sex: Female
  Weight: 47.68 kg

DRUGS (11)
  1. CISPLATIN [Suspect]
     Dosage: 75 MG
  2. DOXORUBICIN HYDROCHLORIDE [Concomitant]
  3. G-CSF (FILGRASTIM, AMGEN) [Suspect]
     Dosage: 6 MG
  4. TAXOL [Suspect]
     Dosage: 240 MG
  5. AMBIEN [Concomitant]
  6. ATIVAN [Concomitant]
  7. COMPAZINE [Concomitant]
  8. LEVSYN [Concomitant]
  9. LOMOTIL [Concomitant]
  10. NEXIUM [Concomitant]
  11. QUESTRAN [Concomitant]

REACTIONS (3)
  - COLITIS [None]
  - EROSIVE OESOPHAGITIS [None]
  - REFLUX OESOPHAGITIS [None]
